FAERS Safety Report 17415951 (Version 1)
Quarter: 2020Q1

REPORT INFORMATION
  Report Type: Spontaneous
  Country: US (occurrence: US)
  Receive Date: 20200213
  Receipt Date: 20200213
  Transmission Date: 20200409
  Serious: Yes (Other)
  Sender: FDA-Public Use
  Company Number: US-BAUSCH-BL-2020-000551

PATIENT
  Sex: Male
  Weight: 88.53 kg

DRUGS (8)
  1. TRULANCE [Suspect]
     Active Substance: PLECANATIDE
     Indication: ABDOMINAL DISTENSION
     Dosage: ONE MONTH AGO
     Route: 048
     Dates: start: 201912, end: 201912
  2. DEXILANT [Concomitant]
     Active Substance: DEXLANSOPRAZOLE
     Indication: GASTROOESOPHAGEAL REFLUX DISEASE
  3. PROBIOTICS [Concomitant]
     Active Substance: PROBIOTICS NOS
     Indication: PRODUCT USED FOR UNKNOWN INDICATION
  4. TRULANCE [Suspect]
     Active Substance: PLECANATIDE
     Indication: CONSTIPATION
     Dosage: ONE EVERY OTHER DAY DURING THE SECOND WEEK
     Route: 048
     Dates: start: 201912, end: 201912
  5. FLAGYL [Concomitant]
     Active Substance: METRONIDAZOLE\METRONIDAZOLE HYDROCHLORIDE
     Indication: DIVERTICULITIS
  6. BENEFIBER [Concomitant]
     Active Substance: STARCH, WHEAT
     Indication: SUPPLEMENTATION THERAPY
  7. AMLODIPINE [Concomitant]
     Active Substance: AMLODIPINE BESYLATE
     Indication: HYPERTENSION
  8. AUGMENTIN [Concomitant]
     Active Substance: AMOXICILLIN\CLAVULANATE POTASSIUM
     Indication: OESOPHAGITIS

REACTIONS (4)
  - Diarrhoea [Recovered/Resolved]
  - Helicobacter infection [Recovered/Resolved]
  - Abdominal distension [Recovered/Resolved]
  - Disease recurrence [Recovered/Resolved]

NARRATIVE: CASE EVENT DATE: 2019
